FAERS Safety Report 15432902 (Version 1)
Quarter: 2018Q3

REPORT INFORMATION
  Report Type: Spontaneous
  Country: US (occurrence: US)
  Receive Date: 20180927
  Receipt Date: 20180927
  Transmission Date: 20181010
  Serious: No
  Sender: FDA-Public Use
  Company Number: US-NOVEN PHARMACEUTICALS, INC.-US2017001053

PATIENT

DRUGS (2)
  1. COMBIPATCH [Suspect]
     Active Substance: ESTRADIOL\NORETHINDRONE ACETATE
     Indication: MENOPAUSE
  2. COMBIPATCH [Suspect]
     Active Substance: ESTRADIOL\NORETHINDRONE ACETATE
     Indication: MOOD SWINGS
     Dosage: 50/140 MG, SUNDAY AND THURSDAY
     Route: 062

REACTIONS (6)
  - Drug administration error [Not Recovered/Not Resolved]
  - Off label use [Unknown]
  - Depressed mood [Recovered/Resolved]
  - Drug ineffective [Recovered/Resolved]
  - Autophobia [Recovered/Resolved]
  - Product storage error [Not Recovered/Not Resolved]

NARRATIVE: CASE EVENT DATE: 2017
